FAERS Safety Report 6770280-6 (Version None)
Quarter: 2010Q2

REPORT INFORMATION
  Report Type: 
  Country: None (occurrence: None)
  Receive Date: 20100615
  Receipt Date: 20100607
  Transmission Date: 20101027
  Serious: Yes (Other)
  Sender: FDA-Public Use
  Company Number: US-BRISTOL-MYERS SQUIBB COMPANY-15140387

PATIENT
  Sex: Female

DRUGS (1)
  1. KENALOG [Suspect]

REACTIONS (4)
  - BONE DISORDER [None]
  - DEFORMITY [None]
  - HORMONE LEVEL ABNORMAL [None]
  - INJECTION SITE ATROPHY [None]
